FAERS Safety Report 8011248-1 (Version None)
Quarter: 2011Q4

REPORT INFORMATION
  Report Type: 
  Country: None (occurrence: None)
  Receive Date: 20111227
  Receipt Date: 20111227
  Transmission Date: 20120403
  Serious: Yes (Disabling)
  Sender: FDA-Public Use
  Company Number: None

PATIENT
  Age: 30 Year
  Sex: Male
  Weight: 63.502 kg

DRUGS (2)
  1. MINOCYCLINE HCL [Suspect]
     Indication: BLEPHARITIS
     Dosage: 50MG
     Route: 048
     Dates: start: 20111031, end: 20111220
  2. VERAPAMIL [Concomitant]
     Route: 048

REACTIONS (1)
  - BRONCHOSPASM [None]
